FAERS Safety Report 9656006 (Version 1)
Quarter: 2013Q4

REPORT INFORMATION
  Report Type: Spontaneous
  Country: US (occurrence: None)
  Receive Date: 20131029
  Receipt Date: 20131029
  Transmission Date: 20140711
  Serious: Yes (Other)
  Sender: FDA-Public Use
  Company Number: None

PATIENT
  Age: 61 Year
  Sex: Female
  Weight: 74.84 kg

DRUGS (1)
  1. AVELOX [Suspect]
     Indication: DIVERTICULITIS
     Dosage: 14 TAB
     Route: 048
     Dates: start: 20131021, end: 20131022

REACTIONS (1)
  - Dizziness [None]
